FAERS Safety Report 6642376-0 (Version None)
Quarter: 2010Q1

REPORT INFORMATION
  Report Type: 
  Country: None (occurrence: None)
  Receive Date: 20100319
  Receipt Date: 20100310
  Transmission Date: 20100710
  Serious: Yes (Other)
  Sender: FDA-Public Use
  Company Number: PT-ROCHE-686514

PATIENT
  Sex: Female
  Weight: 78 kg

DRUGS (6)
  1. HERCEPTIN [Suspect]
     Indication: BREAST CANCER STAGE III
     Route: 042
     Dates: start: 20100106
  2. HERCEPTIN [Suspect]
     Route: 042
     Dates: start: 20100113
  3. CHEMOTHERAPY [Suspect]
     Indication: BREAST CANCER STAGE III
     Route: 065
     Dates: start: 20090501, end: 20091101
  4. CHEMOTHERAPY [Suspect]
     Dosage: 06 CYCLES
     Route: 065
     Dates: start: 20090617, end: 20091001
  5. AROMASIN [Suspect]
     Indication: BREAST CANCER STAGE III
     Dosage: REPORTED AS 1 TABLET, REPORTED AS AROMASIN (EXEMESTANE) 25 MG
     Route: 048
     Dates: start: 20091021, end: 20100127
  6. TAMOXIFEN CITRATE [Concomitant]
     Indication: BREAST CANCER STAGE III
     Route: 048
     Dates: start: 20100201

REACTIONS (8)
  - DEPRESSION [None]
  - FATIGUE [None]
  - FEELING COLD [None]
  - FEELING HOT [None]
  - HAIR GROWTH ABNORMAL [None]
  - HYPERHIDROSIS [None]
  - HYPOAESTHESIA [None]
  - MUSCULOSKELETAL PAIN [None]
